FAERS Safety Report 7024458-7 (Version None)
Quarter: 2010Q4

REPORT INFORMATION
  Report Type: 
  Country: None (occurrence: None)
  Receive Date: 20101001
  Receipt Date: 20100921
  Transmission Date: 20110411
  Serious: No
  Sender: FDA-Public Use
  Company Number: JP-ABBOTT-10P-087-0671217-00

PATIENT
  Sex: Female
  Weight: 30 kg

DRUGS (3)
  1. CLARITHROMYCIN [Suspect]
     Indication: NASOPHARYNGITIS
     Route: 048
     Dates: start: 20100914, end: 20100914
  2. LOXONIN [Concomitant]
     Indication: NASOPHARYNGITIS
     Dosage: 120 MG DAILY
     Route: 048
     Dates: start: 20100914, end: 20100914
  3. UNKNOWN PRODUCT TROCHE [Concomitant]
     Indication: NASOPHARYNGITIS
     Dosage: 3 DF
     Route: 048
     Dates: start: 20100914

REACTIONS (4)
  - DELIRIUM [None]
  - DEPRESSED LEVEL OF CONSCIOUSNESS [None]
  - HALLUCINATION [None]
  - TINNITUS [None]
